FAERS Safety Report 10540725 (Version 6)
Quarter: 2015Q4

REPORT INFORMATION
  Report Type: Report from Study
  Country: US (occurrence: US)
  Receive Date: 20141024
  Receipt Date: 20151028
  Transmission Date: 20160304
  Serious: No
  Sender: FDA-Public Use
  Company Number: US-ABBVIE-09P-163-0573843-00

PATIENT
  Age: 35 Year
  Sex: Female

DRUGS (4)
  1. COMBIVIR [Suspect]
     Active Substance: LAMIVUDINE\ZIDOVUDINE
     Indication: HIV INFECTION
     Route: 048
     Dates: start: 20080824
  2. KALETRA [Suspect]
     Active Substance: LOPINAVIR\RITONAVIR
     Dosage: 800 MG DAILY
     Route: 048
     Dates: start: 20081123
  3. KALETRA [Suspect]
     Active Substance: LOPINAVIR\RITONAVIR
     Dosage: 1200 MG DAILY
     Route: 048
     Dates: start: 20081026, end: 20081123
  4. KALETRA [Suspect]
     Active Substance: LOPINAVIR\RITONAVIR
     Indication: HIV INFECTION
     Dosage: 800MG DAILY
     Route: 048
     Dates: start: 20080824, end: 20081026

REACTIONS (2)
  - Liver function test abnormal [Unknown]
  - Exposure during pregnancy [Unknown]
